FAERS Safety Report 12446814 (Version 1)
Quarter: 2016Q2

REPORT INFORMATION
  Report Type: Spontaneous
  Country: US (occurrence: None)
  Receive Date: 20160607
  Receipt Date: 20160607
  Transmission Date: 20160815
  Serious: No
  Sender: FDA-Public Use
  Company Number: None

PATIENT
  Age: 63 Year
  Sex: Female

DRUGS (1)
  1. INLYTA [Suspect]
     Active Substance: AXITINIB

REACTIONS (5)
  - Tenderness [None]
  - Joint swelling [None]
  - Arthralgia [None]
  - Palmar-plantar erythrodysaesthesia syndrome [None]
  - Erythema [None]

NARRATIVE: CASE EVENT DATE: 20160606
